FAERS Safety Report 4830857-1 (Version None)
Quarter: 2005Q4

REPORT INFORMATION
  Report Type: 
  Country: None (occurrence: None)
  Receive Date: 20051114
  Receipt Date: 20051021
  Transmission Date: 20060501
  Serious: Yes (Hospitalization)
  Sender: FDA-Public Use
  Company Number: S05-BEL-04796-01

PATIENT
  Age: 35 Year
  Sex: Female

DRUGS (2)
  1. ESCITALOPRAM OXALATE [Suspect]
     Indication: DEPRESSION
     Dosage: 10 MG QD PO
     Route: 048
     Dates: start: 20051007, end: 20051015
  2. TRAZODONE [Concomitant]

REACTIONS (3)
  - ANAEMIA [None]
  - DYSKINESIA [None]
  - TREMOR [None]
